FAERS Safety Report 11870046 (Version 1)
Quarter: 2015Q4

REPORT INFORMATION
  Report Type: Spontaneous
  Country: CA (occurrence: CA)
  Receive Date: 20151228
  Receipt Date: 20151228
  Transmission Date: 20160305
  Serious: Yes (Hospitalization, Other)
  Sender: FDA-Public Use
  Company Number: CA-TEVA-621125ACC

PATIENT
  Age: 11 Year
  Sex: Female
  Weight: 38 kg

DRUGS (85)
  1. METHOTREXATE INJECTION, USP [Suspect]
     Active Substance: METHOTREXATE
     Indication: PHILADELPHIA CHROMOSOME POSITIVE
     Dosage: 6.67 GRAM DAILY;
     Route: 042
  2. METHOTREXATE INJECTION, USP [Suspect]
     Active Substance: METHOTREXATE
     Dosage: 6.75 GRAM DAILY;
     Route: 042
  3. ALLOPURINOL. [Concomitant]
     Active Substance: ALLOPURINOL
  4. CHOLECALCIFEROL [Concomitant]
     Active Substance: CHOLECALCIFEROL
  5. CLARITHROMYCIN. [Concomitant]
     Active Substance: CLARITHROMYCIN
  6. HYDROXYZINE [Concomitant]
     Active Substance: HYDROXYZINE\HYDROXYZINE HYDROCHLORIDE
  7. METHOTREXATE [Concomitant]
     Active Substance: METHOTREXATE
  8. METHYLCELLULOSE [Concomitant]
     Active Substance: METHYLCELLULOSES
  9. METOCLOPRAMIDE. [Concomitant]
     Active Substance: METOCLOPRAMIDE
  10. RANITIDINE [Concomitant]
     Active Substance: RANITIDINE\RANITIDINE HYDROCHLORIDE
  11. SPIRONOLACTONE. [Concomitant]
     Active Substance: SPIRONOLACTONE
  12. SPRYCEL [Concomitant]
     Active Substance: DASATINIB
  13. L-ASPARAGINASE [Concomitant]
     Active Substance: ASPARAGINASE
     Route: 030
  14. LEUCOVORIN. [Concomitant]
     Active Substance: LEUCOVORIN
  15. MERCAPTOPURINE. [Concomitant]
     Active Substance: MERCAPTOPURINE
  16. MESNA. [Concomitant]
     Active Substance: MESNA
     Route: 042
  17. POTASSIUM CHLORIDE. [Concomitant]
     Active Substance: POTASSIUM CHLORIDE
  18. PREDNISONE. [Concomitant]
     Active Substance: PREDNISONE
  19. TOBRAMYCIN INJECTION USP [Concomitant]
  20. SULFAMETHOXAZOLE AND TRIMETHOPRIM DS [Concomitant]
     Active Substance: SULFAMETHOXAZOLE\TRIMETHOPRIM
  21. VITAMIN K [Concomitant]
     Active Substance: PHYTONADIONE
  22. METHOTREXATE INJECTION, USP [Suspect]
     Active Substance: METHOTREXATE
     Route: 042
  23. ALUMINUM HYDROXIDE/MAGNESIUM HYDROXIDE [Concomitant]
  24. BASE DERMATOLOGIQUE [Concomitant]
  25. CALCIUM CARBONATE. [Concomitant]
     Active Substance: CALCIUM CARBONATE
  26. CYTARABINE INJECTION [Concomitant]
     Active Substance: CYTARABINE
  27. ETOPOSIDE. [Concomitant]
     Active Substance: ETOPOSIDE
     Route: 042
  28. EUCERIN CREME [Concomitant]
  29. FASTURTEC [Concomitant]
     Active Substance: RASBURICASE
     Route: 042
  30. FUROSEMIDE. [Concomitant]
     Active Substance: FUROSEMIDE
  31. MEROPENEM FOR INJECTION SINGLE USE VIALS [Concomitant]
     Route: 042
  32. AMLODIPINE [Concomitant]
     Active Substance: AMLODIPINE BESYLATE
  33. AMPHOTERICIN B. [Concomitant]
     Active Substance: AMPHOTERICIN B
  34. CEPHALEXIN. [Concomitant]
     Active Substance: CEPHALEXIN
  35. CIPROFLOXACIN. [Concomitant]
     Active Substance: CIPROFLOXACIN
  36. DEXAMETHASONE. [Concomitant]
     Active Substance: DEXAMETHASONE
  37. DIPHENHYDRAMINE. [Concomitant]
     Active Substance: DIPHENHYDRAMINE
  38. DOCUSATE SODIUM. [Concomitant]
     Active Substance: DOCUSATE SODIUM
  39. GLUTAMINE [Concomitant]
     Active Substance: GLUTAMINE
  40. IFOSFAMIDE FOR INJECTION, USP [Concomitant]
     Route: 042
  41. METHOTREXATE INJECTION, USP [Suspect]
     Active Substance: METHOTREXATE
     Indication: ACUTE LYMPHOCYTIC LEUKAEMIA
     Dosage: 6.67 GRAM DAILY;
     Route: 042
  42. METHOTREXATE INJECTION, USP [Suspect]
     Active Substance: METHOTREXATE
     Dosage: 6.75 GRAM DAILY;
     Route: 042
  43. METHOTREXATE INJECTION, USP [Suspect]
     Active Substance: METHOTREXATE
     Dosage: 6.3 GRAM DAILY;
     Route: 042
  44. ACYCLOVIR. [Concomitant]
     Active Substance: ACYCLOVIR
  45. CEFUROXIME. [Concomitant]
     Active Substance: CEFUROXIME
  46. CODEINE [Concomitant]
     Active Substance: CODEINE
  47. DAUNORUBICIN HYDROCHLORIDE FOR INJECTION [Concomitant]
     Route: 042
  48. DIMENHYDRINATE. [Concomitant]
     Active Substance: DIMENHYDRINATE
  49. DOXORUBICIN HYDROCHLORIDE INJECTION [Concomitant]
     Active Substance: DOXORUBICIN HYDROCHLORIDE
  50. GRANISETRON [Concomitant]
     Active Substance: GRANISETRON
  51. INSULIN [Concomitant]
     Active Substance: INSULIN NOS
  52. LEVOFLOXACIN. [Concomitant]
     Active Substance: LEVOFLOXACIN
  53. METRONIDAZOLE. [Concomitant]
     Active Substance: METRONIDAZOLE
  54. MORPHINE [Concomitant]
     Active Substance: MORPHINE
  55. NIFEDIPINE. [Concomitant]
     Active Substance: NIFEDIPINE
  56. NYSTATIN. [Concomitant]
     Active Substance: NYSTATIN
  57. POLYETHYLENE GLYCOL [Concomitant]
     Active Substance: POLYETHYLENE GLYCOLS
  58. VANCOMYCIN [Concomitant]
     Active Substance: VANCOMYCIN
  59. METHOTREXATE INJECTION, USP [Suspect]
     Active Substance: METHOTREXATE
     Dosage: 6.67 GRAM DAILY;
     Route: 042
  60. GABAPENTIN. [Concomitant]
     Active Substance: GABAPENTIN
  61. HYDROCORTISONE. [Concomitant]
     Active Substance: HYDROCORTISONE
  62. LORAZEPAM. [Concomitant]
     Active Substance: LORAZEPAM
  63. ONDANSETRON [Concomitant]
     Active Substance: ONDANSETRON
  64. PIPERACILLIN/TAZOBACTAM [Concomitant]
     Active Substance: PIPERACILLIN SODIUM\TAZOBACTAM SODIUM
  65. VINCRISTINE SULFATE INJECTION USP [Concomitant]
     Active Substance: VINCRISTINE SULFATE
  66. ZINECARD [Concomitant]
     Active Substance: DEXRAZOXANE HYDROCHLORIDE
     Route: 042
  67. ACETAMINOPHEN. [Concomitant]
     Active Substance: ACETAMINOPHEN
  68. AMITRIPTYLINE [Concomitant]
     Active Substance: AMITRIPTYLINE
  69. AMOXICILLIN/CLAVULANIC ACID [Concomitant]
     Active Substance: AMOXICILLIN\CLAVULANIC ACID
  70. CEFTRIAXONE FOR INJECTION USP [Concomitant]
     Route: 030
  71. CLOXACILLIN [Concomitant]
     Active Substance: CLOXACILLIN
  72. GRANULOCYTE COLONY STIMULATING FACTOR (G-CSF) [Concomitant]
  73. HYDROMORPHONE [Concomitant]
     Active Substance: HYDROMORPHONE
  74. MINERAL OIL. [Concomitant]
     Active Substance: MINERAL OIL
  75. NALOXONE [Concomitant]
     Active Substance: NALOXONE
  76. METHOTREXATE INJECTION, USP [Suspect]
     Active Substance: METHOTREXATE
     Dosage: 6.78 GRAM DAILY;
     Route: 042
  77. CEFTAZIDIME FOR INJECTION, USP [Concomitant]
     Route: 030
  78. CYCLOPHOSPHAMIDE. [Concomitant]
     Active Substance: CYCLOPHOSPHAMIDE
  79. FAMCICLOVIR. [Concomitant]
     Active Substance: FAMCICLOVIR
  80. MAGNESIUM [Concomitant]
     Active Substance: MAGNESIUM
  81. METHYLPREDNISOLONE NOS [Concomitant]
     Active Substance: METHYLPREDNISOLONE OR METHYLPREDNISOLONE ACETATE
  82. MOMETASONE FUROATE. [Concomitant]
     Active Substance: MOMETASONE FUROATE
  83. MUPIROCIN. [Concomitant]
     Active Substance: MUPIROCIN
     Route: 061
  84. PENTAMIDINE ISETHIONATE [Concomitant]
     Active Substance: PENTAMIDINE ISETHIONATE
  85. TIMENTIN [Concomitant]
     Active Substance: CLAVULANATE POTASSIUM\TICARCILLIN DISODIUM
     Route: 042

REACTIONS (1)
  - Drug clearance decreased [Recovered/Resolved]
